FAERS Safety Report 11399621 (Version 1)
Quarter: 2015Q3

REPORT INFORMATION
  Report Type: Spontaneous
  Country: TW (occurrence: TW)
  Receive Date: 20150820
  Receipt Date: 20150820
  Transmission Date: 20151125
  Serious: Yes (Hospitalization)
  Sender: FDA-Public Use
  Company Number: TW-MYLANLABS-2015M1027193

PATIENT

DRUGS (2)
  1. RISPERIDONE. [Suspect]
     Active Substance: RISPERIDONE
     Indication: PSYCHOTIC DISORDER
     Dosage: 2 MG/DAY DECREASED TO 1 MG/DAY AND THEN FINALLY DISCONTINUED
     Route: 048
  2. RISPERIDONE. [Suspect]
     Active Substance: RISPERIDONE
     Indication: PSYCHOTIC DISORDER
     Dosage: LONG ACTING; 25 MG EVERY 2 WEEKS AND THEN FINALLY DISCONTINUED
     Route: 065

REACTIONS (2)
  - Psychotic disorder [Recovering/Resolving]
  - Condition aggravated [Recovering/Resolving]
